FAERS Safety Report 18916333 (Version 1)
Quarter: 2021Q1

REPORT INFORMATION
  Report Type: Spontaneous
  Country: CA (occurrence: CA)
  Receive Date: 20210219
  Receipt Date: 20210219
  Transmission Date: 20210420
  Serious: Yes (Other)
  Sender: FDA-Public Use
  Company Number: CA-PFIZER INC-2020188471

PATIENT
  Age: 53 Year
  Sex: Male

DRUGS (5)
  1. MEZAVANT [Concomitant]
     Active Substance: MESALAMINE
     Indication: COLITIS ULCERATIVE
     Dosage: UNK
     Route: 065
  2. MEZAVANT [Concomitant]
     Active Substance: MESALAMINE
     Dosage: 4 DF, 1X/DAY
     Route: 065
  3. PREDNISONE. [Concomitant]
     Active Substance: PREDNISONE
     Dosage: 30 MG, 1X/DAY
     Route: 048
     Dates: start: 20200629, end: 20200824
  4. XELJANZ [Suspect]
     Active Substance: TOFACITINIB CITRATE
     Dosage: 5 MG, 2X/DAY
     Route: 048
     Dates: start: 202009
  5. XELJANZ [Suspect]
     Active Substance: TOFACITINIB CITRATE
     Indication: COLITIS ULCERATIVE
     Dosage: 10 MG, 2X/DAY (BID)
     Route: 048
     Dates: start: 20200409, end: 202009

REACTIONS (12)
  - Skin disorder [Unknown]
  - Joint stiffness [Recovering/Resolving]
  - Thrombosis [Unknown]
  - Lacrimation increased [Unknown]
  - Sleep disorder [Unknown]
  - Epistaxis [Unknown]
  - Drug ineffective [Unknown]
  - Fatigue [Unknown]
  - Colitis [Recovering/Resolving]
  - Immunodeficiency [Unknown]
  - Condition aggravated [Unknown]
  - Arthralgia [Recovering/Resolving]

NARRATIVE: CASE EVENT DATE: 2020
